FAERS Safety Report 4614306-4 (Version None)
Quarter: 2005Q1

REPORT INFORMATION
  Report Type: 
  Country: None (occurrence: None)
  Receive Date: 20050315
  Receipt Date: 20050228
  Transmission Date: 20050727
  Serious: Yes (Hospitalization)
  Sender: FDA-Public Use
  Company Number: F01200404046

PATIENT
  Age: 80 Year
  Sex: Female
  Weight: 81.2 kg

DRUGS (14)
  1. OXALIPLATIN - SOLUTION - 130 MG/M2 [Suspect]
     Indication: NON-SMALL CELL LUNG CANCER
     Dosage: 130 MG/M2 Q3W - INTRAVENOUS NOS
     Route: 042
     Dates: start: 20041210, end: 20041210
  2. GEMCITABINE - SOLUTION - 1000 MG/M2 [Suspect]
     Dosage: 1000 MG/M2 Q3W - INTRAVENOUS NOS
     Route: 042
     Dates: start: 20041217, end: 20041217
  3. WARFARIN SODIUM [Concomitant]
  4. VALDECOXIB [Concomitant]
  5. PROCHLORPERAZINE EDISYLATE [Concomitant]
  6. TORSEMIDE [Concomitant]
  7. POTASSIUM CHLORIDE [Concomitant]
  8. PROPAFENONE HYDROCHLORIDE [Concomitant]
  9. CALCIUM WITH VITAMIN D [Concomitant]
  10. MULTI-VITAMINS [Concomitant]
  11. DARBEPOETIN ALFA [Concomitant]
  12. IRON [Concomitant]
  13. PROPAFENONE HYDROCHLORIDE [Concomitant]
  14. HYDROCHLOROTHIAZIDE [Concomitant]

REACTIONS (9)
  - CARDIAC FAILURE CONGESTIVE [None]
  - CARDIAC MURMUR [None]
  - DYSPNOEA [None]
  - HAEMOPTYSIS [None]
  - ORTHOPNOEA [None]
  - PERICARDIAL EFFUSION [None]
  - PITTING OEDEMA [None]
  - PULMONARY HYPERTENSION [None]
  - RALES [None]
